FAERS Safety Report 20060314 (Version 1)
Quarter: 2021Q4

REPORT INFORMATION
  Report Type: Spontaneous
  Country: JP (occurrence: JP)
  Receive Date: 20211112
  Receipt Date: 20211112
  Transmission Date: 20220303
  Serious: Yes (Hospitalization, Other)
  Sender: FDA-Public Use
  Company Number: JP-SUN PHARMACEUTICAL INDUSTRIES LTD-2021RR-316990

PATIENT
  Age: 31 Year
  Sex: Female

DRUGS (2)
  1. LETROZOLE [Suspect]
     Active Substance: LETROZOLE
     Indication: Breast cancer
     Dosage: 5 MILLIGRAM, DAILY
     Route: 048
  2. CABERGOLINE [Suspect]
     Active Substance: CABERGOLINE
     Indication: Breast cancer
     Dosage: DAILY
     Route: 065

REACTIONS (1)
  - Ovarian hyperstimulation syndrome [Unknown]
